FAERS Safety Report 10976075 (Version 1)
Quarter: 2015Q2

REPORT INFORMATION
  Report Type: Report from Study
  Country: DE (occurrence: DE)
  Receive Date: 20150401
  Receipt Date: 20150401
  Transmission Date: 20150821
  Serious: Yes (Death, Other)
  Sender: FDA-Public Use
  Company Number: DE-BRISTOL-MYERS SQUIBB COMPANY-19840164

PATIENT
  Age: 76 Year
  Sex: Female
  Weight: 76 kg

DRUGS (15)
  1. PARACETAMOL [Concomitant]
     Active Substance: ACETAMINOPHEN
  2. METOCLOPRAMIDE. [Concomitant]
     Active Substance: METOCLOPRAMIDE
  3. PANTOZOL [Concomitant]
     Active Substance: PANTOPRAZOLE SODIUM
  4. METAMIZOL [Concomitant]
     Active Substance: METAMIZOLE SODIUM
  5. CIPROFLOXACIN. [Concomitant]
     Active Substance: CIPROFLOXACIN
  6. RAMIPRIL. [Concomitant]
     Active Substance: RAMIPRIL
  7. METOPROLOL [Concomitant]
     Active Substance: METOPROLOL
  8. FENTANYL. [Concomitant]
     Active Substance: FENTANYL
  9. IPILIMUMAB [Suspect]
     Active Substance: IPILIMUMAB
     Indication: METASTATIC MALIGNANT MELANOMA
  10. URAPIDIL [Concomitant]
     Active Substance: URAPIDIL
  11. DIMENHYDRINATE. [Concomitant]
     Active Substance: DIMENHYDRINATE
  12. JONOSTERIL [Concomitant]
     Active Substance: UNSPECIFIED INGREDIENT
  13. NIVOLUMAB [Suspect]
     Active Substance: NIVOLUMAB
     Indication: METASTATIC MALIGNANT MELANOMA
     Dosage: 90 ML, UNK
     Route: 042
     Dates: start: 20131008, end: 20131008
  14. ATORVASTATIN [Concomitant]
     Active Substance: ATORVASTATIN
  15. ISOSORBIDE MONONITRATE. [Concomitant]
     Active Substance: ISOSORBIDE MONONITRATE

REACTIONS (2)
  - Malignant neoplasm progression [Fatal]
  - Ischaemic stroke [Fatal]

NARRATIVE: CASE EVENT DATE: 20131010
